FAERS Safety Report 5464975-4 (Version None)
Quarter: 2007Q3

REPORT INFORMATION
  Report Type: 
  Country: None (occurrence: None)
  Receive Date: 20070921
  Receipt Date: 20070911
  Transmission Date: 20080115
  Serious: Yes (Other)
  Sender: FDA-Public Use
  Company Number: US-PFIZER INC-2007077927

PATIENT
  Sex: Female
  Weight: 61.7 kg

DRUGS (2)
  1. CHANTIX [Suspect]
     Indication: EX-SMOKER
  2. PROTEIN SUPPLEMENTS [Interacting]
     Indication: WEIGHT DECREASED
     Dosage: FREQ:EVERY DAY

REACTIONS (5)
  - ABNORMAL DREAMS [None]
  - CHEST DISCOMFORT [None]
  - DRUG INTERACTION [None]
  - INSOMNIA [None]
  - WEIGHT INCREASED [None]
